FAERS Safety Report 4410139-2 (Version None)
Quarter: 2004Q2

REPORT INFORMATION
  Report Type: 
  Country: None (occurrence: None)
  Receive Date: 20040618
  Receipt Date: 20040324
  Transmission Date: 20050107
  Serious: No
  Sender: FDA-Public Use
  Company Number: US-JNJFOC-20040306068

PATIENT
  Age: 31 Year
  Sex: Female
  Weight: 58.514 kg

DRUGS (2)
  1. ORTHO EVRA [Suspect]
     Indication: MENSTRUAL DISORDER
     Dosage: 1 DOSE(S), 3 IN 4 WEEK, TRANSDERMAL
     Route: 062
     Dates: start: 20040320
  2. DANAZOL [Concomitant]

REACTIONS (4)
  - ASTHENIA [None]
  - FEELING HOT [None]
  - NASAL SINUS DRAINAGE [None]
  - PHARYNGITIS [None]
